FAERS Safety Report 20130567 (Version 4)
Quarter: 2022Q1

REPORT INFORMATION
  Report Type: Report from Study
  Country: US (occurrence: US)
  Receive Date: 20211130
  Receipt Date: 20220330
  Transmission Date: 20220424
  Serious: Yes (Hospitalization)
  Sender: FDA-Public Use
  Company Number: US-MYOVANT SCIENCES IRELAND LIMITED-2021MYSCI1100124

PATIENT
  Sex: Male

DRUGS (3)
  1. ORGOVYX [Suspect]
     Active Substance: RELUGOLIX
     Indication: Prostate cancer
     Dosage: 360 MILLIGRAM, ONE TIME DOSE
     Route: 048
     Dates: start: 20210803, end: 20210803
  2. ORGOVYX [Suspect]
     Active Substance: RELUGOLIX
     Dosage: 120 MILLIGRAM, QD
     Route: 048
     Dates: start: 20210804
  3. ORGOVYX [Suspect]
     Active Substance: RELUGOLIX
     Dosage: UNK

REACTIONS (5)
  - Dysphagia [Not Recovered/Not Resolved]
  - Pharyngeal swelling [Unknown]
  - Oropharyngeal pain [Not Recovered/Not Resolved]
  - Decreased appetite [Unknown]
  - Productive cough [Unknown]
